FAERS Safety Report 7455039-9 (Version None)
Quarter: 2011Q2

REPORT INFORMATION
  Report Type: 
  Country: None (occurrence: None)
  Receive Date: 20110503
  Receipt Date: 20110422
  Transmission Date: 20111010
  Serious: Yes (Death)
  Sender: FDA-Public Use
  Company Number: JP-SANOFI-AVENTIS-2011SA025441

PATIENT
  Age: 75 Year
  Sex: Male

DRUGS (6)
  1. OXALIPLATIN [Suspect]
     Route: 041
  2. CALCIUM LEVOFOLINATE [Concomitant]
     Indication: COLON CANCER
     Dosage: ROUTE: DR
     Route: 041
     Dates: start: 20071017, end: 20080531
  3. FLUOROURACIL [Concomitant]
     Indication: COLON CANCER
     Dosage: FORM: BOTH BOLUS AND DRIP
     Route: 042
     Dates: start: 20071017, end: 20080531
  4. OXALIPLATIN [Suspect]
     Route: 041
     Dates: start: 20071103, end: 20071103
  5. OXALIPLATIN [Suspect]
     Route: 041
     Dates: start: 20080531, end: 20080531
  6. OXALIPLATIN [Suspect]
     Indication: COLON CANCER
     Route: 041
     Dates: start: 20071017, end: 20071017

REACTIONS (2)
  - HYPERAMMONAEMIA [None]
  - DISEASE PROGRESSION [None]
